FAERS Safety Report 5135124-7 (Version None)
Quarter: 2006Q4

REPORT INFORMATION
  Report Type: 
  Country: None (occurrence: None)
  Receive Date: 20060831
  Receipt Date: 20060515
  Transmission Date: 20070319
  Serious: No
  Sender: FDA-Public Use
  Company Number: 2006-BP-05467BP

PATIENT
  Age: 85 Year
  Sex: Male

DRUGS (9)
  1. SPIRIVA [Suspect]
     Indication: CHRONIC OBSTRUCTIVE PULMONARY DISEASE
     Dosage: 18 MCG (18 MCG,1 IN 1 D),IH
     Route: 055
     Dates: start: 20040801, end: 20041001
  2. TRENTAL [Concomitant]
  3. VASOTEC [Concomitant]
  4. ZYBAN [Concomitant]
  5. COLACE GENERIC [Concomitant]
  6. CARDURA [Concomitant]
  7. HALCION GENERIC [Concomitant]
  8. ALPRAZOLAM [Concomitant]
  9. PREVACID [Concomitant]

REACTIONS (2)
  - LIP DRY [None]
  - PHARYNGOLARYNGEAL PAIN [None]
